FAERS Safety Report 6608184 (Version 2)
Quarter: 2025Q3

REPORT INFORMATION
  Report Type: Spontaneous
  Country: EU (occurrence: EU)
  Receive Date: 20080408
  Receipt Date: 20250704
  Transmission Date: 20251020
  Serious: Yes (Death, Hospitalization, Other)
  Sender: MERCK SHARP & DOHME LLC
  Company Number: None

PATIENT
  Age: 25 Year
  Sex: Female

DRUGS (7)
  1. CASPOFUNGIN [Suspect]
     Active Substance: CASPOFUNGIN
     Indication: Peritonitis
     Route: 041
     Dates: start: 2005, end: 2005
  2. THYMOGLOBULIN [Concomitant]
     Active Substance: LAPINE T-LYMPHOCYTE IMMUNE GLOBULIN
  3. TACROLIMUS [Concomitant]
     Active Substance: TACROLIMUS
  4. AZATHIOPRINE [Concomitant]
     Active Substance: AZATHIOPRINE
  5. PREDNISOLONE [Concomitant]
     Active Substance: PREDNISOLONE
  6. RITUXIMAB [Concomitant]
     Active Substance: RITUXIMAB
     Indication: B-cell lymphoma
  7. FLUCONAZOLE [Concomitant]
     Active Substance: FLUCONAZOLE
     Indication: Candida infection

REACTIONS (2)
  - Multiple organ dysfunction syndrome [Fatal]
  - Sepsis [Fatal]

NARRATIVE: CASE EVENT DATE: 20050101
